FAERS Safety Report 6322452-2 (Version None)
Quarter: 2009Q3

REPORT INFORMATION
  Report Type: 
  Country: None (occurrence: None)
  Receive Date: 20090821
  Receipt Date: 20090821
  Transmission Date: 20100115
  Serious: Yes (Hospitalization)
  Sender: FDA-Public Use
  Company Number: None

PATIENT
  Sex: Male
  Weight: 70.4 kg

DRUGS (6)
  1. CYTARABINE [Suspect]
     Dosage: 70 MG
  2. DAUNORUBICIN HCL [Suspect]
     Dosage: 68 MG
  3. METHOTREXATE SODIUM [Suspect]
     Dosage: 15 MG
  4. PEG-L- ASPARAGINASE (K-H) [Suspect]
     Dosage: 4750 MG
  5. PREDNISONE TAB [Suspect]
     Dosage: 1925 MG
  6. VINCRISTINE SULFATE [Suspect]
     Dosage: 4 MG

REACTIONS (2)
  - GAS GANGRENE [None]
  - SEPTIC SHOCK [None]
